FAERS Safety Report 8539129-5 (Version None)
Quarter: 2012Q3

REPORT INFORMATION
  Report Type: 
  Country: None (occurrence: None)
  Receive Date: 20120713
  Receipt Date: 20120628
  Transmission Date: 20120928
  Serious: Yes (Other)
  Sender: FDA-Public Use
  Company Number: 2012AP002034

PATIENT
  Age: 9 Year
  Sex: Male

DRUGS (4)
  1. NORTRIPTYLINE HCL [Concomitant]
  2. CYPROHEPTADINE HCL [Concomitant]
  3. FERROUS SULFATE TAB [Concomitant]
  4. SERTRALINE HYDROCHLORIDE [Suspect]
     Indication: GENERALISED ANXIETY DISORDER
     Dosage: 25 MG; QD

REACTIONS (2)
  - ERYTHEMA MULTIFORME [None]
  - OFF LABEL USE [None]
